FAERS Safety Report 5557497-3 (Version None)
Quarter: 2007Q4

REPORT INFORMATION
  Report Type: 
  Country: None (occurrence: None)
  Receive Date: 20071214
  Receipt Date: 20071203
  Transmission Date: 20080405
  Serious: Yes (Other)
  Sender: FDA-Public Use
  Company Number: IT-WYE-H01584707

PATIENT

DRUGS (2)
  1. SIROLIMUS [Suspect]
     Indication: IMMUNOSUPPRESSANT DRUG THERAPY
     Dosage: LOADING DOSE OF 0.1 MG/KG ON DAY 1
  2. SIROLIMUS [Suspect]
     Dosage: 0.05 MG/KG DAILY FOR NEXT FEW DAYS, WITH DOSE ADJUSTMENTS SEEKING A TROUGH LEVEL OF 8 - 10 NG/ML

REACTIONS (1)
  - LIVER TRANSPLANT REJECTION [None]
